FAERS Safety Report 9374458 (Version 1)
Quarter: 2013Q2

REPORT INFORMATION
  Report Type: Spontaneous
  Country: ES (occurrence: ES)
  Receive Date: 20130628
  Receipt Date: 20130628
  Transmission Date: 20140414
  Serious: Yes (Death, Hospitalization)
  Sender: FDA-Public Use
  Company Number: ES-SANOFI-AVENTIS-2013SA063148

PATIENT
  Age: 34 Year
  Sex: Male

DRUGS (5)
  1. LANTUS [Suspect]
     Indication: HYPERGLYCAEMIA
     Dosage: DOSE: 12 U TO 18 U
     Route: 058
     Dates: start: 20110401, end: 201106
  2. METFORMIN [Suspect]
     Indication: HYPERGLYCAEMIA
     Dosage: EMPIEZA CON 1/2 HASTA  TRES AL DIA HASTA 06/2011. EN 09/2011 2/ 24 H HASTA 04/2012.
     Route: 048
     Dates: start: 20110419, end: 201106
  3. METFORMIN [Suspect]
     Indication: HYPERGLYCAEMIA
     Route: 048
     Dates: start: 201109, end: 201204
  4. JANUMET [Suspect]
     Indication: HYPERGLYCAEMIA
     Dosage: 2/24 HORAS
     Route: 048
     Dates: start: 20110630, end: 20110923
  5. JANUVIA [Suspect]
     Indication: HYPERGLYCAEMIA
     Dosage: 1/24 HORAS. NO SE CONOCE LA PRESENTACION PRESCRITA
     Route: 048
     Dates: start: 201204, end: 201207

REACTIONS (2)
  - Colon cancer stage IV [Fatal]
  - Abdominal pain [Recovered/Resolved]
